FAERS Safety Report 4985495-7 (Version None)
Quarter: 2006Q2

REPORT INFORMATION
  Report Type: 
  Country: None (occurrence: None)
  Receive Date: 20060428
  Receipt Date: 20050520
  Transmission Date: 20061013
  Serious: No
  Sender: FDA-Public Use
  Company Number: US-GLAXOSMITHKLINE-A0559567A

PATIENT
  Age: 74 Year
  Sex: Male

DRUGS (11)
  1. FLOVENT [Suspect]
     Indication: CHRONIC OBSTRUCTIVE PULMONARY DISEASE
     Dosage: 2PUFF TWICE PER DAY
     Route: 055
     Dates: start: 20030101
  2. SEREVENT [Concomitant]
  3. FLONASE [Concomitant]
  4. TRIZIDIN [Concomitant]
  5. UNKNOWN MEDICATION [Concomitant]
  6. COZAAR [Concomitant]
  7. RANITIDINE [Concomitant]
  8. HYDROCHLOROTHIAZIDE [Concomitant]
  9. PRIMVERA [Concomitant]
  10. BUPROPION HCL [Concomitant]
  11. OXYGEN [Concomitant]

REACTIONS (1)
  - CANDIDIASIS [None]
